FAERS Safety Report 11016638 (Version 2)
Quarter: 2015Q2

REPORT INFORMATION
  Report Type: Spontaneous
  Country: US (occurrence: US)
  Receive Date: 20150412
  Receipt Date: 20150525
  Transmission Date: 20150821
  Serious: No
  Sender: FDA-Public Use
  Company Number: US-JNJFOC-20130109988

PATIENT

DRUGS (4)
  1. ERIVEDGE [Suspect]
     Active Substance: VISMODEGIB
     Indication: NEOPLASM
     Dosage: ON DAY 8
     Route: 065
  2. ORTHO NOVUM 1/35 [Suspect]
     Active Substance: ETHINYL ESTRADIOL\NORETHINDRONE
     Indication: BASAL CELL CARCINOMA
     Dosage: ON DAY 1 AND ON DAY 8
     Route: 048
  3. ORTHO NOVUM 1/35 [Suspect]
     Active Substance: ETHINYL ESTRADIOL\NORETHINDRONE
     Indication: NEOPLASM
     Dosage: ON DAY 1 AND ON DAY 8
     Route: 048
  4. ERIVEDGE [Suspect]
     Active Substance: VISMODEGIB
     Indication: BASAL CELL CARCINOMA
     Dosage: ON DAY 8
     Route: 065

REACTIONS (1)
  - Weight decreased [Unknown]
